FAERS Safety Report 5714495-4 (Version None)
Quarter: 2008Q2

REPORT INFORMATION
  Report Type: 
  Country: None (occurrence: None)
  Receive Date: 20080423
  Receipt Date: 20080409
  Transmission Date: 20081010
  Serious: Yes (Death, Other)
  Sender: FDA-Public Use
  Company Number: PHHY2008JP05539

PATIENT
  Age: 76 Year
  Sex: Male

DRUGS (2)
  1. ZOMETA [Suspect]
     Indication: HYPERCALCAEMIA OF MALIGNANCY
     Dosage: 4 MG DILUTED IN 100 ML NORMAL SALINE
     Route: 042
     Dates: start: 20070104, end: 20070104
  2. ZOMETA [Suspect]
     Dosage: 4 MG DILUTED TO 100 ML NORMAL SALINE
     Route: 042
     Dates: start: 20070125, end: 20070125

REACTIONS (4)
  - BLOOD ALBUMIN DECREASED [None]
  - BLOOD UREA INCREASED [None]
  - DEHYDRATION [None]
  - MALIGNANT NEOPLASM PROGRESSION [None]
